FAERS Safety Report 17362843 (Version 1)
Quarter: 2020Q1

REPORT INFORMATION
  Report Type: Other
  Country: US (occurrence: PL)
  Receive Date: 20200203
  Receipt Date: 20200203
  Transmission Date: 20200409
  Serious: Yes (Life-Threatening, Other)
  Sender: FDA-Public Use
  Company Number: PL-BRECKENRIDGE PHARMACEUTICAL, INC.-2079756

PATIENT
  Age: 68 Year
  Sex: Female

DRUGS (2)
  1. PROPAFENONE. [Interacting]
     Active Substance: PROPAFENONE
  2. DULOXETINE. [Suspect]
     Active Substance: DULOXETINE

REACTIONS (2)
  - Drug interaction [None]
  - Granulocytopenia [None]
